FAERS Safety Report 12316446 (Version 3)
Quarter: 2018Q1

REPORT INFORMATION
  Report Type: Report from Study
  Country: EG (occurrence: EG)
  Receive Date: 20160429
  Receipt Date: 20180112
  Transmission Date: 20180508
  Serious: Yes (Hospitalization)
  Sender: FDA-Public Use
  Company Number: EG-ROCHE-1747751

PATIENT
  Age: 47 Year
  Sex: Male

DRUGS (3)
  1. SOFOSBUVIR [Suspect]
     Active Substance: SOFOSBUVIR
     Indication: CHRONIC HEPATITIS C
     Dosage: EVERY DAY FOR 12 WEEKS
     Route: 048
     Dates: start: 20150312, end: 20150507
  2. RAVIDASVIR [Suspect]
     Active Substance: RAVIDASVIR
     Indication: CHRONIC HEPATITIS C
     Dosage: EVERY DAY FOR 12 WEEKS
     Route: 048
     Dates: start: 20150312, end: 20150507
  3. RIBAVIRIN. [Suspect]
     Active Substance: RIBAVIRIN
     Indication: CHRONIC HEPATITIS C
     Route: 048
     Dates: start: 20150312, end: 20150507

REACTIONS (1)
  - Bradycardia [Recovered/Resolved]
